FAERS Safety Report 13445308 (Version 1)
Quarter: 2017Q2

REPORT INFORMATION
  Report Type: Spontaneous
  Country: DE (occurrence: DE)
  Receive Date: 20170414
  Receipt Date: 20170414
  Transmission Date: 20170830
  Serious: Yes (Death, Disabling, Other)
  Sender: FDA-Public Use
  Company Number: DE-JNJFOC-20170415961

PATIENT
  Age: 22 Year
  Sex: Male

DRUGS (1)
  1. TRAMAL [Suspect]
     Active Substance: TRAMADOL
     Indication: ABDOMINAL PAIN
     Route: 065

REACTIONS (3)
  - Drug use disorder [Unknown]
  - Death [Fatal]
  - Drug ineffective [Unknown]
